FAERS Safety Report 6237362-9 (Version None)
Quarter: 2009Q2

REPORT INFORMATION
  Report Type: 
  Country: None (occurrence: None)
  Receive Date: 20090619
  Receipt Date: 20090609
  Transmission Date: 20091009
  Serious: Yes (Other)
  Sender: FDA-Public Use
  Company Number: PHHY2009IT22946

PATIENT
  Age: 43 Year
  Sex: Female

DRUGS (3)
  1. CARBAMAZEPINE [Suspect]
     Indication: COMPLEX PARTIAL SEIZURES
     Dosage: 800 MG/DAY
  2. TEMOZOLOMIDE [Concomitant]
     Indication: CHEMOTHERAPY
  3. RADIOTHERAPY [Concomitant]

REACTIONS (1)
  - HAEMATOTOXICITY [None]
